FAERS Safety Report 6687882-8 (Version None)
Quarter: 2010Q2

REPORT INFORMATION
  Report Type: 
  Country: None (occurrence: None)
  Receive Date: 20100420
  Receipt Date: 20100329
  Transmission Date: 20101027
  Serious: Yes (Disabling)
  Sender: FDA-Public Use
  Company Number: IT-BAYER-200826082GPV

PATIENT

DRUGS (26)
  1. CAMPATH [Suspect]
     Indication: PERIPHERAL T-CELL LYMPHOMA UNSPECIFIED
     Dosage: DOSE ESCALATION
     Route: 058
  2. CAMPATH [Suspect]
     Dosage: DOSE ESCALATION
     Route: 058
  3. CAMPATH [Suspect]
     Dosage: DAY 0
     Route: 058
  4. CAMPATH [Suspect]
     Dosage: DAY 0 SECOND CYCLE OF CHOP
     Route: 058
  5. PREDNISONE [Suspect]
     Indication: PERIPHERAL T-CELL LYMPHOMA UNSPECIFIED
     Dosage: DAYS 1-5
     Route: 048
  6. PREDNISONE [Suspect]
     Dosage: DAYS 1-5
     Route: 048
  7. DOXORUBICIN HCL [Suspect]
     Indication: PERIPHERAL T-CELL LYMPHOMA UNSPECIFIED
     Dosage: DAY 1
  8. DOXORUBICIN HCL [Suspect]
     Dosage: DAY 1
  9. VINCRISTINE [Suspect]
     Indication: PERIPHERAL T-CELL LYMPHOMA UNSPECIFIED
     Dosage: DAY 1
  10. VINCRISTINE [Suspect]
     Dosage: DAY 1
  11. CYCLOPHOSPHAMIDE [Suspect]
     Indication: PERIPHERAL T-CELL LYMPHOMA UNSPECIFIED
     Dosage: DAY 1
  12. CYCLOPHOSPHAMIDE [Suspect]
     Dosage: 30 MG/KG DAYS -4 AND -3
  13. CYCLOPHOSPHAMIDE [Suspect]
     Dosage: 300 MG/M2 EVERY 12 HOURS DAYS 2,3,4
  14. CYCLOPHOSPHAMIDE [Suspect]
     Dosage: DAY 1
  15. CYCLOPHOSPHAMIDE [Suspect]
     Dosage: 300 MG/M2 EVERY 12 HOURS DAYS 5,6,7
  16. METHOTREXATE [Suspect]
     Indication: PERIPHERAL T-CELL LYMPHOMA UNSPECIFIED
     Dosage: DAYS 1 AND 21 AND MONTHLY FOR 6 MONTHS
     Route: 037
  17. METHOTREXATE [Suspect]
     Dosage: 10 MG/SM DAY +1, 8 MG/SM DAY +3, +6
  18. METHOTREXATE [Suspect]
     Dosage: 1.5 G/M2 DAY 1
     Route: 042
  19. METHOTREXATE [Suspect]
     Dosage: 1.5 G/M2 DAY 5
     Route: 042
  20. ARA-C [Suspect]
     Indication: PERIPHERAL T-CELL LYMPHOMA UNSPECIFIED
     Dosage: DAYS 1 AND 21 AND MONTHLY FOR 6 MONTHS
     Route: 037
  21. ARA-C [Suspect]
     Dosage: 2 G/M2 EVERY 12 HOURS AT DAYS 5,6,7
  22. ARA-C [Suspect]
     Dosage: 2 G/M2 EVERY 12 HOURS AT DAYS 2,3,4
  23. THIOTEPA [Suspect]
     Indication: STEM CELL TRANSPLANT
     Dosage: 10MG/KG DAY -6
  24. FLUDARABINE [Suspect]
     Indication: STEM CELL TRANSPLANT
     Dosage: 30 MG/M2 DAY -4, -3
  25. CYCLOSPORINE [Suspect]
     Indication: PROPHYLAXIS AGAINST GRAFT VERSUS HOST DISEASE
     Dosage: WITHDRAWN
  26. DEXAMETHASONE [Suspect]
     Indication: PERIPHERAL T-CELL LYMPHOMA UNSPECIFIED
     Dosage: DAYS 1 AND 21 AND MONTHLY FOR 6 MONTHS
     Route: 037

REACTIONS (2)
  - ENCEPHALITIS [None]
  - WERNICKE'S ENCEPHALOPATHY [None]
